FAERS Safety Report 6997003-X (Version None)
Quarter: 2010Q3

REPORT INFORMATION
  Report Type: 
  Country: None (occurrence: None)
  Receive Date: 20100918
  Receipt Date: 20090915
  Transmission Date: 20110219
  Serious: No
  Sender: FDA-Public Use
  Company Number: US-WYE-H10763509

PATIENT
  Sex: Female
  Weight: 90.8 kg

DRUGS (5)
  1. PRISTIQ [Suspect]
     Indication: DEPRESSION
     Route: 048
     Dates: start: 20090819, end: 20090824
  2. PRISTIQ [Suspect]
     Indication: ANXIETY
  3. RAMIPRIL [Concomitant]
  4. CHOLESTYRAMINE [Concomitant]
  5. LEXAPRO [Suspect]
     Indication: DEPRESSION
     Dates: start: 20090825

REACTIONS (4)
  - DIZZINESS [None]
  - DRUG INEFFECTIVE [None]
  - HEADACHE [None]
  - HYPERHIDROSIS [None]
